FAERS Safety Report 6322222-5 (Version None)
Quarter: 2009Q3

REPORT INFORMATION
  Report Type: 
  Country: None (occurrence: None)
  Receive Date: 20090824
  Receipt Date: 20090812
  Transmission Date: 20100115
  Serious: Yes (Other)
  Sender: FDA-Public Use
  Company Number: FR-PFIZER INC-2009254405

PATIENT
  Age: 56 Year

DRUGS (4)
  1. INSPRA [Suspect]
     Indication: BLOOD ALDOSTERONE
     Dosage: 25 MG, 1X/DAY
     Dates: start: 20090101
  2. INSULIN [Concomitant]
     Indication: DIABETES MELLITUS
  3. SIMVASTATIN [Concomitant]
     Indication: HYPERCHOLESTEROLAEMIA
  4. COTAREG [Concomitant]
     Indication: HYPERTENSION

REACTIONS (2)
  - CHOLESTASIS [None]
  - CYTOLYTIC HEPATITIS [None]
